FAERS Safety Report 11784639 (Version 1)
Quarter: 2015Q4

REPORT INFORMATION
  Report Type: Report from Study
  Country: US (occurrence: US)
  Receive Date: 20151130
  Receipt Date: 20151130
  Transmission Date: 20160305
  Serious: Yes (Death)
  Sender: FDA-Public Use
  Company Number: US-ACTELION-A-US2015-127763

PATIENT
  Age: 69 Year
  Sex: Female

DRUGS (11)
  1. CLONAZEPAM. [Concomitant]
     Active Substance: CLONAZEPAM
  2. OMEPRAZOLE. [Concomitant]
     Active Substance: OMEPRAZOLE
  3. AMLODIPINE [Concomitant]
     Active Substance: AMLODIPINE BESYLATE
  4. DIGOXIN. [Concomitant]
     Active Substance: DIGOXIN
  5. MAGNESIUM [Concomitant]
     Active Substance: MAGNESIUM
  6. TRAMADOL. [Concomitant]
     Active Substance: TRAMADOL
  7. PREDNISONE. [Concomitant]
     Active Substance: PREDNISONE
  8. MACITENTAN [Suspect]
     Active Substance: MACITENTAN
     Indication: PULMONARY ARTERIAL HYPERTENSION
     Dosage: 10 MG, UNK
     Route: 048
     Dates: start: 20151022
  9. ADCIRCA [Concomitant]
     Active Substance: TADALAFIL
  10. ENALAPRIL [Concomitant]
     Active Substance: ENALAPRIL
  11. TYVASO [Concomitant]
     Active Substance: TREPROSTINIL

REACTIONS (1)
  - Death [Fatal]
